FAERS Safety Report 5723133-6 (Version None)
Quarter: 2008Q2

REPORT INFORMATION
  Report Type: 
  Country: None (occurrence: None)
  Receive Date: 20080430
  Receipt Date: 20080421
  Transmission Date: 20081010
  Serious: Yes (Hospitalization)
  Sender: FDA-Public Use
  Company Number: DE-JNJFOC-20061103874

PATIENT
  Sex: Female
  Weight: 68 kg

DRUGS (10)
  1. INFLIXIMAB [Suspect]
     Route: 042
  2. INFLIXIMAB [Suspect]
     Route: 042
  3. INFLIXIMAB [Suspect]
     Route: 042
  4. INFLIXIMAB [Suspect]
     Route: 042
  5. INFLIXIMAB [Suspect]
     Route: 042
  6. INFLIXIMAB [Suspect]
     Route: 042
  7. INFLIXIMAB [Suspect]
     Route: 042
  8. INFLIXIMAB [Suspect]
     Indication: CROHN'S DISEASE
     Route: 042
  9. METHOTREXATE [Concomitant]
     Indication: CROHN'S DISEASE
     Route: 065
  10. FOLIC ACID [Concomitant]
     Indication: CROHN'S DISEASE
     Route: 065

REACTIONS (3)
  - CELLULITIS [None]
  - IMPAIRED HEALING [None]
  - WOUND INFECTION [None]
